APPROVED DRUG PRODUCT: MESNA
Active Ingredient: MESNA
Strength: 100MG/ML
Dosage Form/Route: INJECTABLE;INTRAVENOUS
Application: A075739 | Product #001 | TE Code: AP
Applicant: HIKMA PHARMACEUTICALS USA INC
Approved: Jan 9, 2004 | RLD: No | RS: No | Type: RX